FAERS Safety Report 5036834-2 (Version None)
Quarter: 2006Q2

REPORT INFORMATION
  Report Type: 
  Country: None (occurrence: None)
  Receive Date: 20060612
  Receipt Date: 20050418
  Transmission Date: 20061013
  Serious: Yes (Life-Threatening, Disabling)
  Sender: FDA-Public Use
  Company Number: WAES 0504USA03225

PATIENT
  Age: 76 Year
  Sex: Female

DRUGS (4)
  1. COSOPT [Suspect]
     Indication: INTRAOCULAR PRESSURE TEST
     Dosage: OPHT
     Route: 047
     Dates: start: 20030101, end: 20050415
  2. CALTRATE [Concomitant]
  3. LOTREL [Concomitant]
  4. VALIUM [Concomitant]

REACTIONS (3)
  - DEPRESSION [None]
  - HALLUCINATION [None]
  - NIGHTMARE [None]
